FAERS Safety Report 12482749 (Version 1)
Quarter: 2016Q2

REPORT INFORMATION
  Report Type: Spontaneous
  Country: US (occurrence: US)
  Receive Date: 20160620
  Receipt Date: 20160620
  Transmission Date: 20160815
  Serious: Yes (Other)
  Sender: FDA-Public Use
  Company Number: US-PFIZER INC-2016304036

PATIENT
  Age: 59 Year
  Sex: Female

DRUGS (18)
  1. EFFEXOR XR [Suspect]
     Active Substance: VENLAFAXINE HYDROCHLORIDE
     Dosage: 300 MG, 1X/DAY (150 MG X2)
     Route: 048
  2. BENZTROPINE MESYLATE. [Concomitant]
     Active Substance: BENZTROPINE MESYLATE
     Dosage: 1 MG, 1X/DAY (BEDTIME)
  3. LATUDA [Concomitant]
     Active Substance: LURASIDONE HYDROCHLORIDE
     Dosage: 20 MG, DAILY
  4. TAMOXIFEN CITRATE. [Concomitant]
     Active Substance: TAMOXIFEN CITRATE
     Dosage: 10 MG, 2X/DAY
  5. OXYBUTYNIN CHLORIDE. [Concomitant]
     Active Substance: OXYBUTYNIN CHLORIDE
     Dosage: 10 MG, DAILY
  6. NOVOLOG [Concomitant]
     Active Substance: INSULIN ASPART
     Dosage: 1 IU, UNK (FOR EVERY 10 CARBS)
  7. ASPRIN [Concomitant]
     Active Substance: ASPIRIN
     Dosage: 81 MG, DAILY
  8. SYNTHROID [Concomitant]
     Active Substance: LEVOTHYROXINE SODIUM
     Dosage: 200 UG, DAILY
  9. VITAMIN D3 [Concomitant]
     Active Substance: CHOLECALCIFEROL
     Dosage: 2000 IU, DAILY
  10. FISH OIL [Concomitant]
     Active Substance: FISH OIL
     Dosage: 1000 MG, 2X/DAY
  11. SEROQUEL XR [Concomitant]
     Active Substance: QUETIAPINE FUMARATE
     Dosage: 400 MG, 1X/DAY (AT BEDTIME)
  12. NIACIN. [Concomitant]
     Active Substance: NIACIN
     Dosage: 500 MG, DAILY
  13. ZOCOR [Concomitant]
     Active Substance: SIMVASTATIN
     Dosage: 40 MG, DAILY
  14. HALOPERIDOL. [Concomitant]
     Active Substance: HALOPERIDOL
     Dosage: 5 MG, 1X/DAY (AT BEDTIME)
  15. TRAZODONE HYDROCHLORIDE. [Concomitant]
     Active Substance: TRAZODONE HYDROCHLORIDE
     Dosage: 50 MG, UNK (1-2 AT BEDTIME)
  16. LANTUS [Concomitant]
     Active Substance: INSULIN GLARGINE
     Dosage: 18 IU, 2X/DAY (18 UNITS IN THE AM AND 18 UNITSAT HS)
  17. DEPAKOTE [Concomitant]
     Active Substance: DIVALPROEX SODIUM
     Dosage: 750 MG, 1X/DAY (AT BEDTIME) (500 AND 250)
  18. METOPROLOL TARTRATE. [Concomitant]
     Active Substance: METOPROLOL TARTRATE
     Dosage: 25 MG, 2X/DAY
     Route: 048

REACTIONS (6)
  - Schizoaffective disorder [Unknown]
  - Prescribed overdose [Unknown]
  - Dyskinesia [Unknown]
  - Tardive dyskinesia [Unknown]
  - Parkinsonism [Unknown]
  - Insomnia [Unknown]
